FAERS Safety Report 10068909 (Version 1)
Quarter: 2014Q2

REPORT INFORMATION
  Report Type: Spontaneous
  Country: JP (occurrence: JP)
  Receive Date: 20140409
  Receipt Date: 20140409
  Transmission Date: 20141212
  Serious: Yes (Other)
  Sender: FDA-Public Use
  Company Number: JP-PFIZER INC-2014098437

PATIENT
  Sex: Female

DRUGS (3)
  1. LYRICA [Suspect]
     Dosage: 150 MG, DAILY
     Route: 048
  2. LYRICA [Suspect]
     Dosage: 75 MG, 1X/DAY, BEFORE BEDTIME
     Route: 048
  3. LYRICA [Suspect]
     Dosage: 100 MG, DAILY (25 MG IN THE MORNING AND 75 MG BEFORE BEDTIME)
     Route: 048

REACTIONS (4)
  - Fall [Unknown]
  - Rib fracture [Unknown]
  - Insomnia [Unknown]
  - Weight increased [Unknown]
